FAERS Safety Report 11347797 (Version 1)
Quarter: 2015Q3

REPORT INFORMATION
  Report Type: Spontaneous
  Country: US (occurrence: US)
  Receive Date: 20150803
  Receipt Date: 20150803
  Transmission Date: 20151125
  Serious: No
  Sender: FDA-Public Use
  Company Number: US-ELI_LILLY_AND_COMPANY-US201110003382

PATIENT
  Age: 77 Year
  Sex: Female

DRUGS (1)
  1. ZYPREXA [Suspect]
     Active Substance: OLANZAPINE
     Indication: HALLUCINATION, VISUAL
     Dosage: 10 MG, QD
     Dates: start: 201107, end: 20111010

REACTIONS (10)
  - Memory impairment [Unknown]
  - Dizziness [Unknown]
  - Nervousness [Unknown]
  - Renal disorder [Unknown]
  - Fatigue [Unknown]
  - Feeling abnormal [Unknown]
  - Tremor [Unknown]
  - Weight increased [Unknown]
  - Dyskinesia [Unknown]
  - Dry mouth [Unknown]

NARRATIVE: CASE EVENT DATE: 201107
